FAERS Safety Report 18952028 (Version 1)
Quarter: 2021Q1

REPORT INFORMATION
  Report Type: Spontaneous
  Country: IN (occurrence: IN)
  Receive Date: 20210301
  Receipt Date: 20210301
  Transmission Date: 20210420
  Serious: Yes (Other)
  Sender: FDA-Public Use
  Company Number: IN-LUPIN PHARMACEUTICALS INC.-2021-02336

PATIENT
  Age: 28 Year
  Sex: Male

DRUGS (2)
  1. RIFAMPIN. [Suspect]
     Active Substance: RIFAMPIN
     Indication: CUTANEOUS LEISHMANIASIS
     Dosage: UNK
     Route: 065
  2. SODIUM STIBOGLUCONATE [Suspect]
     Active Substance: SODIUM STIBOGLUCONATE
     Indication: CUTANEOUS LEISHMANIASIS
     Dosage: UNK? INJECTION OF 0???5 ML/CMSQ (100 G/L)
     Route: 065

REACTIONS (1)
  - Therapy non-responder [Unknown]
